FAERS Safety Report 10170149 (Version 2)
Quarter: 2014Q2

REPORT INFORMATION
  Report Type: Report from Study
  Country: GB (occurrence: GB)
  Receive Date: 20140513
  Receipt Date: 20140513
  Transmission Date: 20141212
  Serious: Yes (Other)
  Sender: FDA-Public Use
  Company Number: GB-VERTEX PHARMACEUTICALS INC-2014-000541

PATIENT
  Age: 54 Year
  Sex: Female
  Weight: 60.2 kg

DRUGS (7)
  1. VX-950 (TELAPREVIR) [Suspect]
     Indication: HEPATITIS C
     Dosage: UNK, BID
     Dates: start: 20140103, end: 20140124
  2. PEG INTERFERON [Suspect]
     Indication: HEPATITIS C
     Dosage: DOSAGE FORM: INJECTION
     Route: 058
     Dates: start: 20140103
  3. PEG INTERFERON [Suspect]
     Dosage: DOSAGE FORM: INJECTION
     Route: 058
     Dates: start: 20140103, end: 20140414
  4. RIBAVIRIN [Suspect]
     Indication: HEPATITIS C
     Dosage: DOSAGE FORM: TABLETS
     Route: 048
     Dates: start: 20140103
  5. RIBAVIRIN [Suspect]
     Dosage: DOSAGE FORM: TABLETS
     Route: 048
     Dates: start: 20140103, end: 20140414
  6. ATENOLOL [Concomitant]
     Indication: MIGRAINE
     Dosage: 50 MG PER DAY AS NECESSARY
  7. NARATRIPTAN [Concomitant]
     Indication: MIGRAINE
     Dosage: 2-5MG A DAY AS NECESSARY

REACTIONS (18)
  - Neutropenia [Not Recovered/Not Resolved]
  - Fatigue [Recovering/Resolving]
  - Thrombocytopenia [Not Recovered/Not Resolved]
  - Vomiting [Recovering/Resolving]
  - Anaemia [Not Recovered/Not Resolved]
  - Decreased appetite [Not Recovered/Not Resolved]
  - Dysphagia [Unknown]
  - Feeling abnormal [Unknown]
  - Sleep disorder [Unknown]
  - Disturbance in attention [Unknown]
  - Dry mouth [Unknown]
  - Thirst [Unknown]
  - Fatigue [Not Recovered/Not Resolved]
  - Dysgeusia [Unknown]
  - Haemorrhoids [Not Recovered/Not Resolved]
  - Diarrhoea [Unknown]
  - Nausea [Recovered/Resolved]
  - Anal pruritus [Recovered/Resolved]
